FAERS Safety Report 5398017-6 (Version None)
Quarter: 2007Q3

REPORT INFORMATION
  Report Type: 
  Country: None (occurrence: None)
  Receive Date: 20070726
  Receipt Date: 20061114
  Transmission Date: 20080115
  Serious: No
  Sender: FDA-Public Use
  Company Number: US-BRISTOL-MYERS SQUIBB COMPANY-13580287

PATIENT
  Age: 75 Year
  Sex: Female

DRUGS (2)
  1. MAXIPIME [Suspect]
     Indication: URINARY TRACT INFECTION
     Route: 042
     Dates: start: 20061107, end: 20061108
  2. WARFARIN SODIUM [Concomitant]

REACTIONS (1)
  - CHROMATURIA [None]
